FAERS Safety Report 16342007 (Version 4)
Quarter: 2020Q1

REPORT INFORMATION
  Report Type: Spontaneous
  Country: US (occurrence: US)
  Receive Date: 20190522
  Receipt Date: 20200327
  Transmission Date: 20200409
  Serious: No
  Sender: FDA-Public Use
  Company Number: US-BIOGEN-2019BI00727949

PATIENT
  Sex: Female

DRUGS (1)
  1. TECFIDERA [Suspect]
     Active Substance: DIMETHYL FUMARATE
     Indication: MULTIPLE SCLEROSIS
     Route: 065
     Dates: start: 20190128, end: 20190901

REACTIONS (7)
  - Alopecia [Recovered/Resolved]
  - Gastric disorder [Not Recovered/Not Resolved]
  - Disorientation [Unknown]
  - Abdominal discomfort [Unknown]
  - Memory impairment [Not Recovered/Not Resolved]
  - Distractibility [Unknown]
  - Flushing [Unknown]

NARRATIVE: CASE EVENT DATE: 2019
